FAERS Safety Report 4983058-0 (Version None)
Quarter: 2006Q2

REPORT INFORMATION
  Report Type: 
  Country: None (occurrence: None)
  Receive Date: 20060419
  Receipt Date: 20060405
  Transmission Date: 20061013
  Serious: Yes (Hospitalization)
  Sender: FDA-Public Use
  Company Number: 2006BH007686

PATIENT
  Age: 64 Year
  Sex: Male
  Weight: 94.7 kg

DRUGS (12)
  1. EXTRANEAL [Suspect]
     Indication: PERITONEAL DIALYSIS
     Dosage: 2000 ML; EVERY DAY; IP
     Dates: start: 20051031
  2. PHYSIOSOL IN PLASTIC CONTAINER [Suspect]
     Indication: PERITONEAL DIALYSIS
     Dosage: SEE IMAGE
     Dates: start: 20051031
  3. PHYSIOSOL IN PLASTIC CONTAINER [Suspect]
     Indication: PERITONEAL DIALYSIS
     Dosage: SEE IMAGE
     Dates: start: 20051031
  4. AMIODARONE HCL [Concomitant]
  5. METOPROLOL SUCCINATE [Concomitant]
  6. FUROSEMIDE [Concomitant]
  7. TRIAMTEREN [Concomitant]
  8. OMEPRAZOLE [Concomitant]
  9. L-THYROXINE [Concomitant]
  10. RAMIPRIL [Concomitant]
  11. SIMVASTATIN [Concomitant]
  12. PHENPROCOUMON [Concomitant]

REACTIONS (2)
  - ALPHA HAEMOLYTIC STREPTOCOCCAL INFECTION [None]
  - PERITONITIS BACTERIAL [None]
